FAERS Safety Report 4769833-6 (Version None)
Quarter: 2005Q3

REPORT INFORMATION
  Report Type: 
  Country: None (occurrence: None)
  Receive Date: 20050912
  Receipt Date: 20050725
  Transmission Date: 20060218
  Serious: No
  Sender: FDA-Public Use
  Company Number: 2004-00857

PATIENT
  Age: 72 Year
  Sex: Male
  Weight: 71.2 kg

DRUGS (5)
  1. VELCADE [Suspect]
     Indication: MULTIPLE MYELOMA
     Dosage: 2.50 MG, INTRAVENOUS
     Route: 042
     Dates: start: 20040413, end: 20041008
  2. PEPCID [Concomitant]
  3. MULTIVITAMINS (ERGOCALCIFEROL, ASCORBIC ACID, PANTHENOL, NICOTINAMIDE, [Concomitant]
  4. BACTRIM [Concomitant]
  5. ZOMETA [Concomitant]

REACTIONS (2)
  - ERECTILE DYSFUNCTION [None]
  - FATIGUE [None]
